FAERS Safety Report 16653203 (Version 1)
Quarter: 2019Q3

REPORT INFORMATION
  Report Type: Spontaneous
  Country: CA (occurrence: CA)
  Receive Date: 20190731
  Receipt Date: 20190731
  Transmission Date: 20191004
  Serious: Yes (Hospitalization, Other)
  Sender: FDA-Public Use
  Company Number: CA-TEVA-2019-CA-1084278

PATIENT
  Age: 60 Year
  Sex: Female

DRUGS (1)
  1. CARBOPLATIN. [Suspect]
     Active Substance: CARBOPLATIN
     Route: 042

REACTIONS (4)
  - Abdominal pain [Recovered/Resolved]
  - Rash erythematous [Recovered/Resolved]
  - Nausea [Unknown]
  - Rash generalised [Recovered/Resolved]
